FAERS Safety Report 8197152-7 (Version None)
Quarter: 2012Q1

REPORT INFORMATION
  Report Type: 
  Country: None (occurrence: None)
  Receive Date: 20120309
  Receipt Date: 20120301
  Transmission Date: 20120608
  Serious: Yes (Other)
  Sender: FDA-Public Use
  Company Number: GB-SANOFI-AVENTIS-2012SA013962

PATIENT
  Age: 71 Year
  Sex: Female
  Weight: 54 kg

DRUGS (11)
  1. AUGMENTIN '125' [Concomitant]
     Route: 065
  2. ALBUTEROL [Concomitant]
     Route: 065
  3. SIMVASTATIN [Concomitant]
     Dates: end: 20120130
  4. PYRIDOXINE HCL [Concomitant]
     Route: 065
     Dates: start: 20120125
  5. ETHAMBUTOL HYDROCHLORIDE [Concomitant]
     Route: 065
     Dates: start: 20120125
  6. ACETAMINOPHEN [Concomitant]
     Route: 065
  7. RIFATER [Suspect]
     Indication: PULMONARY TUBERCULOSIS
     Dosage: 5 TABLETS OD PO DOSE:5 UNIT(S)
     Route: 065
     Dates: start: 20120125, end: 20120130
  8. SANDO K [Concomitant]
     Route: 065
  9. IPRATROPIUM BROMIDE [Concomitant]
     Route: 065
  10. CLARITHROMYCIN [Concomitant]
     Route: 065
  11. PIPERACILLIN AND TAZOBACTAM [Concomitant]
     Route: 065

REACTIONS (2)
  - MYOPATHY TOXIC [None]
  - MUSCULAR WEAKNESS [None]
